FAERS Safety Report 7712617-7 (Version None)
Quarter: 2011Q3

REPORT INFORMATION
  Report Type: 
  Country: None (occurrence: None)
  Receive Date: 20110826
  Receipt Date: 20110823
  Transmission Date: 20111222
  Serious: Yes (Hospitalization)
  Sender: FDA-Public Use
  Company Number: JP-EISAI INC-E2020-09633-SPO-JP

PATIENT
  Age: 78 Year
  Sex: Female

DRUGS (2)
  1. ARICEPT [Suspect]
     Indication: DEMENTIA ALZHEIMER'S TYPE
     Route: 048
     Dates: start: 20110716, end: 20110719
  2. ARICEPT [Suspect]
     Route: 048
     Dates: start: 20110720, end: 20110801

REACTIONS (1)
  - RHABDOMYOLYSIS [None]
